FAERS Safety Report 8475241 (Version 5)
Quarter: 2014Q2

REPORT INFORMATION
  Report Type: Spontaneous
  Country: US (occurrence: US)
  Receive Date: 20120326
  Receipt Date: 20140619
  Transmission Date: 20141212
  Serious: Yes (Hospitalization, Other)
  Sender: FDA-Public Use
  Company Number: US-AMGEN-USASP2012017599

PATIENT
  Age: 41 Year
  Sex: Female
  Weight: 59 kg

DRUGS (5)
  1. PEGFILGRASTIM [Suspect]
     Indication: BREAST CANCER
     Dosage: 6 MG, ON DAY 2 OF CYCLE
     Route: 058
     Dates: start: 20080922
  2. BEVACIZUMAB [Suspect]
     Indication: BREAST CANCER
     Dosage: UNK, OVER 30-90 MIN ON DAY 1
     Route: 042
     Dates: start: 20080922
  3. CYCLOPHOSPHAMIDE [Suspect]
     Indication: BREAST CANCER
     Dosage: 1008 MG, OVER 20-30 MIN ON DAY 1
     Route: 042
     Dates: start: 20080922
  4. DOXORUBICIN HYDROCHLORIDE [Suspect]
     Indication: BREAST CANCER
     Dosage: 100 MG, ON DAY 1 OF CYCLE
     Route: 042
     Dates: start: 20080922
  5. PACLITAXEL [Concomitant]
     Indication: BREAST CANCER
     Dosage: 80 MG/M2, DAYS 1, 8, 15 (3 IN 1 CYCLICAL)
     Route: 042

REACTIONS (4)
  - Chills [Recovered/Resolved]
  - Pyrexia [Recovered/Resolved]
  - Fatigue [Recovered/Resolved]
  - Nausea [Recovered/Resolved]
